FAERS Safety Report 22615016 (Version 1)
Quarter: 2023Q2

REPORT INFORMATION
  Report Type: Spontaneous
  Country: US (occurrence: US)
  Receive Date: 20230619
  Receipt Date: 20230619
  Transmission Date: 20230722
  Serious: No
  Sender: FDA-Public Use
  Company Number: US-BRISTOL-MYERS SQUIBB COMPANY-2023-085531

PATIENT
  Age: 72 Year
  Sex: Male
  Weight: 111.13 kg

DRUGS (1)
  1. REVLIMID [Suspect]
     Active Substance: LENALIDOMIDE
     Indication: Plasma cell myeloma
     Dosage: 2W ON 2W OFF
     Route: 048
     Dates: start: 20210301

REACTIONS (2)
  - Muscle spasms [Recovering/Resolving]
  - Off label use [Unknown]
